FAERS Safety Report 5086531-2 (Version None)
Quarter: 2006Q3

REPORT INFORMATION
  Report Type: 
  Country: None (occurrence: None)
  Receive Date: 20060821
  Receipt Date: 20060821
  Transmission Date: 20061208
  Serious: Yes (Other)
  Sender: FDA-Public Use
  Company Number: None

PATIENT
  Age: 48 Year
  Sex: Female
  Weight: 58.0604 kg

DRUGS (1)
  1. ZYMAR [Suspect]
     Indication: INFECTION PROPHYLAXIS
     Dosage: I GTT    4X/DAY   INTRAOCULAR
     Route: 031
     Dates: start: 20060723, end: 20060729

REACTIONS (2)
  - DRUG HYPERSENSITIVITY [None]
  - RASH GENERALISED [None]
